FAERS Safety Report 10287253 (Version 2)
Quarter: 2014Q4

REPORT INFORMATION
  Report Type: Report from Study
  Country: CO (occurrence: None)
  Receive Date: 20140707
  Receipt Date: 20141204
  Transmission Date: 20150528
  Serious: Yes (Other)
  Sender: FDA-Public Use
  Company Number: 2014-19894

PATIENT
  Age: 83 Year
  Sex: Female

DRUGS (5)
  1. VALSARTAN. [Concomitant]
     Active Substance: VALSARTAN
  2. LOSARTAN (LOSARTAN) [Concomitant]
     Active Substance: LOSARTAN
  3. EYLEA [Suspect]
     Active Substance: AFLIBERCEPT
     Indication: AGE-RELATED MACULAR DEGENERATION
  4. EYLEA [Suspect]
     Active Substance: AFLIBERCEPT
  5. PROPRANOLOL HYDROCHLORIDE (PROPRANOLOL HYDROCHLORDE) [Concomitant]

REACTIONS (6)
  - Hip fracture [None]
  - Fall [None]
  - Pain in extremity [None]
  - Facial bones fracture [None]
  - Wrist fracture [None]
  - Dizziness [None]

NARRATIVE: CASE EVENT DATE: 201403
